FAERS Safety Report 5250810-6 (Version None)
Quarter: 2007Q1

REPORT INFORMATION
  Report Type: 
  Country: None (occurrence: None)
  Receive Date: 20070228
  Receipt Date: 20060710
  Transmission Date: 20070707
  Serious: Yes (Hospitalization)
  Sender: FDA-Public Use
  Company Number: US-GLAXOSMITHKLINE-A0611679A

PATIENT
  Sex: Male

DRUGS (1)
  1. LAMICTAL [Suspect]

REACTIONS (7)
  - COLD SWEAT [None]
  - HYPERHIDROSIS [None]
  - PYREXIA [None]
  - RASH [None]
  - RASH MACULAR [None]
  - SWELLING FACE [None]
  - URTICARIA [None]
